FAERS Safety Report 5072251-7 (Version None)
Quarter: 2006Q3

REPORT INFORMATION
  Report Type: 
  Country: None (occurrence: None)
  Receive Date: 20060710
  Receipt Date: 20050727
  Transmission Date: 20061208
  Serious: Yes (Other)
  Sender: FDA-Public Use
  Company Number: PHEH2005US07791

PATIENT
  Age: 68 Year
  Sex: Female

DRUGS (5)
  1. GLEEVEC [Suspect]
     Indication: CHRONIC MYELOID LEUKAEMIA
     Dosage: 5 QD
     Dates: start: 20011119
  2. ATENOLOL [Concomitant]
  3. DYAZIDE [Concomitant]
  4. POTASSIUM (POTASSIUM) [Concomitant]
  5. PREMARIN [Concomitant]

REACTIONS (9)
  - CHEST X-RAY ABNORMAL [None]
  - CONJUNCTIVITIS [None]
  - COUGH [None]
  - DIARRHOEA [None]
  - DIFFUSE ALVEOLAR DAMAGE [None]
  - DYSPNOEA [None]
  - PERIORBITAL OEDEMA [None]
  - PNEUMONITIS [None]
  - PULMONARY FIBROSIS [None]
